FAERS Safety Report 9186018 (Version 1)
Quarter: 2013Q1

REPORT INFORMATION
  Report Type: Spontaneous
  Country: US (occurrence: None)
  Receive Date: 20120628
  Receipt Date: 20120628
  Transmission Date: 20140127
  Serious: Yes (Hospitalization)
  Sender: FDA-Public Use
  Company Number: PHEH2012US004767

PATIENT
  Age: 69 Year
  Sex: Female
  Weight: 122 kg

DRUGS (5)
  1. RECLAST [Suspect]
     Indication: OSTEOPOROSIS
     Dates: start: 20120217
  2. DIURETICS (NO INGREDIENTS/SUBSTANCES) [Concomitant]
  3. ACE INHIBITORS (NO INGREDIENTS/SUBSTANCES) [Concomitant]
  4. CALCIUM (CALCIUM) [Concomitant]
  5. VITAMIN D3 (COLECALCIFEROL) [Concomitant]

REACTIONS (7)
  - Renal failure acute [None]
  - Dehydration [None]
  - Vomiting [None]
  - Diarrhoea [None]
  - Decreased appetite [None]
  - Pain [None]
  - Arthralgia [None]
